FAERS Safety Report 24572331 (Version 1)
Quarter: 2024Q4

REPORT INFORMATION
  Report Type: Spontaneous
  Country: CN (occurrence: CN)
  Receive Date: 20241101
  Receipt Date: 20241101
  Transmission Date: 20250115
  Serious: Yes (Other)
  Sender: AMGEN
  Company Number: CN-AMGEN-CHNSP2024215274

PATIENT
  Age: 54 Year
  Sex: Female
  Weight: 50 kg

DRUGS (3)
  1. CARFILZOMIB [Suspect]
     Active Substance: CARFILZOMIB
     Indication: Chemotherapy
     Dosage: 39 MILLIGRAM, DAY1, 27 MILLIGRAM/SQ. METER
     Route: 040
     Dates: start: 20240925, end: 20240926
  2. POMALIDOMIDE [Concomitant]
     Active Substance: POMALIDOMIDE
     Dosage: 2 MILLIGRAM, QD
     Dates: start: 20240925
  3. DEXAMETHASONE [Concomitant]
     Active Substance: DEXAMETHASONE
     Dosage: 10 MILLIGRAM, DAY 1
     Dates: start: 20240925

REACTIONS (1)
  - Myelosuppression [Recovering/Resolving]

NARRATIVE: CASE EVENT DATE: 20240928
